FAERS Safety Report 8588192-4 (Version None)
Quarter: 2012Q3

REPORT INFORMATION
  Report Type: 
  Country: None (occurrence: None)
  Receive Date: 20120731
  Receipt Date: 20120717
  Transmission Date: 20120928
  Serious: Yes (Hospitalization)
  Sender: FDA-Public Use
  Company Number: US-2012-10962

PATIENT
  Sex: Female

DRUGS (1)
  1. SAMSCA [Suspect]
     Dosage: 15 MG MILLIGRAM(S) ; 30 MG MILLIGRAM(S)

REACTIONS (2)
  - HYPOTENSION [None]
  - DYSPNOEA [None]
